FAERS Safety Report 13358059 (Version 2)
Quarter: 2017Q2

REPORT INFORMATION
  Report Type: Spontaneous
  Country: US (occurrence: US)
  Receive Date: 20170322
  Receipt Date: 20170405
  Transmission Date: 20170830
  Serious: No
  Sender: FDA-Public Use
  Company Number: US-LUPIN PHARMACEUTICALS INC.-E2B_00007406

PATIENT
  Sex: Female
  Weight: 45.36 kg

DRUGS (1)
  1. DULOXETINE DELAYED-RELEASE CAPSULES 40 MG [Suspect]
     Active Substance: DULOXETINE
     Indication: PAIN IN EXTREMITY
     Dosage: 40 MG,QD,
     Route: 048
     Dates: end: 20160213

REACTIONS (1)
  - Rash [Not Recovered/Not Resolved]
